FAERS Safety Report 6684978-1 (Version None)
Quarter: 2010Q2

REPORT INFORMATION
  Report Type: 
  Country: None (occurrence: None)
  Receive Date: 20100416
  Receipt Date: 20100408
  Transmission Date: 20101027
  Serious: No
  Sender: FDA-Public Use
  Company Number: US-CEPHALON-US021607

PATIENT
  Sex: Male

DRUGS (4)
  1. FENTORA [Suspect]
     Indication: GUILLAIN-BARRE SYNDROME
     Route: 002
  2. FENTORA [Suspect]
     Route: 002
  3. NORCO [Suspect]
  4. OXYCODONE [Concomitant]
     Route: 065
     Dates: start: 20071001

REACTIONS (2)
  - DRUG PRESCRIBING ERROR [None]
  - INCORRECT ROUTE OF DRUG ADMINISTRATION [None]
